FAERS Safety Report 4795639-8 (Version None)
Quarter: 2005Q3

REPORT INFORMATION
  Report Type: 
  Country: None (occurrence: None)
  Receive Date: 20050929
  Receipt Date: 20050715
  Transmission Date: 20060218
  Serious: No
  Sender: FDA-Public Use
  Company Number: 05P-163-0305922-00

PATIENT
  Age: 39 Year
  Sex: Female
  Weight: 89.8122 kg

DRUGS (13)
  1. HUMIRA [Suspect]
     Indication: RHEUMATOID ARTHRITIS
     Dosage: 40 MG, 1 IN 2 WK, SUBCUTANEOUS
     Route: 058
     Dates: start: 20050501
  2. MELOXICAM [Concomitant]
  3. ULTRACET [Concomitant]
  4. HYDROXYCHLOROQUINE PHOSPHATE [Concomitant]
  5. SULFASALAZINE [Concomitant]
  6. OMEPRAZOLE [Concomitant]
  7. ZELNON [Concomitant]
  8. METOCLOPRAMIDE [Concomitant]
  9. FLUTICASONE PROPIONATE [Concomitant]
  10. ADAIR 250/50 [Concomitant]
  11. ZYRTEC-D 12 HOUR [Concomitant]
  12. HEMATINIC WITH FOLIC ACID [Concomitant]
  13. OVACON [Concomitant]

REACTIONS (1)
  - INJECTION SITE IRRITATION [None]
